FAERS Safety Report 5567376-3 (Version None)
Quarter: 2007Q4

REPORT INFORMATION
  Report Type: 
  Country: None (occurrence: None)
  Receive Date: 20071130
  Receipt Date: 20070801
  Transmission Date: 20080405
  Serious: No
  Sender: FDA-Public Use
  Company Number: US200708002545

PATIENT
  Age: 70 Year
  Sex: Female
  Weight: 108.8 kg

DRUGS (6)
  1. BYETTA [Suspect]
     Indication: TYPE 2 DIABETES MELLITUS
     Dosage: 5 UG, 2/D, SUBCUTANEOUS;  5 UG, SUBCUTANEOUS;  10 UG, 2/D, SUBCUTANEOUS;  5 UG, 2/D, SUBCUTANEOUS
     Route: 058
     Dates: start: 20070101, end: 20070101
  2. BYETTA [Suspect]
     Indication: TYPE 2 DIABETES MELLITUS
     Dosage: 5 UG, 2/D, SUBCUTANEOUS;  5 UG, SUBCUTANEOUS;  10 UG, 2/D, SUBCUTANEOUS;  5 UG, 2/D, SUBCUTANEOUS
     Route: 058
     Dates: start: 20070101, end: 20070101
  3. BYETTA [Suspect]
     Indication: TYPE 2 DIABETES MELLITUS
     Dosage: 5 UG, 2/D, SUBCUTANEOUS;  5 UG, SUBCUTANEOUS;  10 UG, 2/D, SUBCUTANEOUS;  5 UG, 2/D, SUBCUTANEOUS
     Route: 058
     Dates: start: 20070201, end: 20070101
  4. BYETTA [Suspect]
     Indication: TYPE 2 DIABETES MELLITUS
     Dosage: 5 UG, 2/D, SUBCUTANEOUS;  5 UG, SUBCUTANEOUS;  10 UG, 2/D, SUBCUTANEOUS;  5 UG, 2/D, SUBCUTANEOUS
     Route: 058
     Dates: start: 20070101
  5. GLYBURIDE [Concomitant]
  6. METFORMIN HCL [Concomitant]

REACTIONS (2)
  - CATARACT [None]
  - CATARACT OPERATION [None]
